FAERS Safety Report 13257149 (Version 1)
Quarter: 2017Q1

REPORT INFORMATION
  Report Type: Spontaneous
  Country: US (occurrence: US)
  Receive Date: 20170221
  Receipt Date: 20170221
  Transmission Date: 20170428
  Serious: Yes (Other)
  Sender: FDA-Public Use
  Company Number: US-ABBVIE-17P-163-1881405-00

PATIENT
  Age: 36 Year
  Sex: Female

DRUGS (1)
  1. LUPRON DEPOT [Suspect]
     Active Substance: LEUPROLIDE ACETATE
     Indication: ENDOMETRIOSIS
     Route: 050

REACTIONS (6)
  - Menorrhagia [Unknown]
  - Uterine adhesions [Unknown]
  - Uterine leiomyoma [Unknown]
  - Polycystic ovaries [Unknown]
  - Exposure during pregnancy [Unknown]
  - Anaemia [Unknown]
